FAERS Safety Report 4351453-9 (Version None)
Quarter: 2004Q2

REPORT INFORMATION
  Report Type: 
  Country: None (occurrence: None)
  Receive Date: 20040430
  Receipt Date: 20040430
  Transmission Date: 20050107
  Serious: Yes (Hospitalization)
  Sender: FDA-Public Use
  Company Number: None

PATIENT
  Sex: Male
  Weight: 84.369 kg

DRUGS (2)
  1. HEPARIN [Suspect]
     Indication: DEEP VEIN THROMBOSIS
     Dosage: 1600-1800 U/H CONTINOUS IV
     Route: 042
     Dates: start: 20040412, end: 20040415
  2. DALTEPARIN [Suspect]
     Indication: DEEP VEIN THROMBOSIS
     Dosage: 10000-5000 BID SQ
     Route: 058
     Dates: start: 20040415, end: 20040416

REACTIONS (1)
  - PLATELET COUNT DECREASED [None]
